FAERS Safety Report 12584012 (Version 1)
Quarter: 2016Q3

REPORT INFORMATION
  Report Type: Spontaneous
  Country: DE (occurrence: DE)
  Receive Date: 20160722
  Receipt Date: 20160722
  Transmission Date: 20161109
  Serious: Yes (Congenital Anomaly)
  Sender: FDA-Public Use
  Company Number: DE-MYLANLABS-2016M1029850

PATIENT

DRUGS (5)
  1. AMLODIPINE [Suspect]
     Active Substance: AMLODIPINE BESYLATE
     Indication: HYPERTENSION
     Dosage: 10 MG, QD (10 [MG/D ])
     Route: 064
  2. EXFORGE [Concomitant]
     Active Substance: AMLODIPINE BESYLATE\VALSARTAN
     Indication: HYPERTENSION
     Dosage: 160 UNK, QD (10 [MG/D ] / 160 [MG/D ])
     Route: 064
  3. METHYLDOPA. [Suspect]
     Active Substance: METHYLDOPA
     Indication: HYPERTENSION
     Dosage: UNK (750 [MG/D ]/ 250-0-500 MG/D)
     Route: 064
  4. BISOPROLOL [Concomitant]
     Active Substance: BISOPROLOL
     Indication: HYPERTENSION
     Dosage: 5 MG, QD (5 [MG/D ])
     Route: 064
  5. VENLAFAXINE [Suspect]
     Active Substance: VENLAFAXINE HYDROCHLORIDE
     Indication: PERINATAL DEPRESSION
     Dosage: 225 [MG/D (BIS 150 MG/D) ]/ DOSE REDUCTION TO 150 MG/D IN WEEK 12.
     Route: 064
     Dates: start: 20150525, end: 20160224

REACTIONS (3)
  - Aortic valve stenosis [Not Recovered/Not Resolved]
  - Atrial septal defect [Recovering/Resolving]
  - Foetal exposure during pregnancy [Unknown]
